FAERS Safety Report 16015302 (Version 7)
Quarter: 2022Q4

REPORT INFORMATION
  Report Type: Other
  Country: DE (occurrence: None)
  Receive Date: 20190228
  Receipt Date: 20221122
  Transmission Date: 20230113
  Serious: Yes (Other)
  Sender: FDA-Public Use
  Company Number: DE-ROCHE-2130664

PATIENT
  Age: 54 Year
  Sex: Female

DRUGS (12)
  1. OCREVUS [Suspect]
     Active Substance: OCRELIZUMAB
     Indication: Secondary progressive multiple sclerosis
     Route: 042
     Dates: start: 20180401
  2. OCREVUS [Suspect]
     Active Substance: OCRELIZUMAB
     Dosage: 3RD INFUSION
     Route: 042
     Dates: start: 20181016
  3. OCREVUS [Suspect]
     Active Substance: OCRELIZUMAB
     Dosage: NEXT INFUSION ON 19/JUL/2019
     Route: 042
     Dates: start: 20180403
  4. OCREVUS [Suspect]
     Active Substance: OCRELIZUMAB
     Dosage: SUBSEQUENT DOSE: 20/DEC/2019, AUG/2020
     Route: 042
     Dates: start: 20190619
  5. OCREVUS [Suspect]
     Active Substance: OCRELIZUMAB
     Route: 042
     Dates: start: 20210803
  6. METOPROLOL TARTRATE [Concomitant]
     Active Substance: METOPROLOL TARTRATE
     Dosage: METODURA COMP ?100/12.5 MG
  7. DULOXETINE [Concomitant]
     Active Substance: DULOXETINE
     Dosage: 1-0-0/ 0-0-1
  8. DIAZEPAM [Concomitant]
     Active Substance: DIAZEPAM
     Dosage: 1-0-0
  9. DIAZEPAM [Concomitant]
     Active Substance: DIAZEPAM
  10. DALFAMPRIDINE [Concomitant]
     Active Substance: DALFAMPRIDINE
     Dosage: 1-0-1
  11. AMITRIPTYLINE HYDROCHLORIDE [Concomitant]
     Active Substance: AMITRIPTYLINE HYDROCHLORIDE
     Dosage: 0-0-1
  12. MAGNESIUM [Concomitant]
     Active Substance: MAGNESIUM
     Dosage: 1-0-1

REACTIONS (22)
  - Loss of consciousness [Recovered/Resolved]
  - Gait disturbance [Recovering/Resolving]
  - Limb discomfort [Recovering/Resolving]
  - Paraesthesia [Not Recovered/Not Resolved]
  - Muscle spasms [Not Recovered/Not Resolved]
  - Fatigue [Recovered/Resolved]
  - Fine motor skill dysfunction [Not Recovered/Not Resolved]
  - Nasopharyngitis [Recovered/Resolved]
  - Blood test abnormal [Recovered/Resolved]
  - Haemangioma of liver [Recovered/Resolved]
  - Spinal pain [Recovering/Resolving]
  - Fall [Unknown]
  - Pain in extremity [Recovering/Resolving]
  - Bladder dysfunction [Recovered/Resolved]
  - Muscle spasticity [Recovered/Resolved]
  - Gait disturbance [Not Recovered/Not Resolved]
  - Arthralgia [Recovering/Resolving]
  - Muscle spasticity [Recovered/Resolved]
  - Off label use [Unknown]
  - Paraesthesia [Recovering/Resolving]
  - Tremor [Not Recovered/Not Resolved]
  - COVID-19 [Recovered/Resolved]

NARRATIVE: CASE EVENT DATE: 20180501
